FAERS Safety Report 6868657-3 (Version None)
Quarter: 2010Q3

REPORT INFORMATION
  Report Type: 
  Country: None (occurrence: None)
  Receive Date: 20100721
  Receipt Date: 20100721
  Transmission Date: 20110219
  Serious: Yes (Other)
  Sender: FDA-Public Use
  Company Number: None

PATIENT
  Age: 46 Year
  Sex: Female
  Weight: 57.1532 kg

DRUGS (14)
  1. QUETIAPINE [Suspect]
     Indication: BIPOLAR DISORDER
     Dosage: 450 MG ONCE IN 12 HOURS PO
     Route: 048
     Dates: start: 20030601, end: 20100721
  2. SERTRALINE HYDROCHLORIDE [Suspect]
     Indication: SUICIDE ATTEMPT
     Dosage: 50 MG ONCE IN 12 HOURS PO
     Route: 048
     Dates: start: 20080101, end: 20100721
  3. AMITRIPTYLINE HYDROCHLORIDE [Concomitant]
  4. IMIPRAMINE [Concomitant]
  5. RISPERIDONE [Concomitant]
  6. LITHIUM [Concomitant]
  7. VALPROATE SODIUM [Concomitant]
  8. CHLORPROMAZEINE [Concomitant]
  9. KEMADREINE [Concomitant]
  10. HALAPARADOL [Concomitant]
  11. ZLOPACLONE [Concomitant]
  12. SERTRALEINE [Concomitant]
  13. PROCYCLIDEINE [Concomitant]
  14. LEVOTHYROXINE [Concomitant]

REACTIONS (6)
  - DEPRESSION [None]
  - HYPERSOMNIA [None]
  - HYPOPHAGIA [None]
  - MALAISE [None]
  - POOR PERSONAL HYGIENE [None]
  - SOCIAL AVOIDANT BEHAVIOUR [None]
